FAERS Safety Report 7135907-8 (Version None)
Quarter: 2010Q4

REPORT INFORMATION
  Report Type: 
  Country: None (occurrence: None)
  Receive Date: 20101204
  Receipt Date: 20101122
  Transmission Date: 20110411
  Serious: Yes (Hospitalization)
  Sender: FDA-Public Use
  Company Number: ES-BAYER-201045936GPV

PATIENT

DRUGS (2)
  1. VENTAVIS [Suspect]
     Indication: PULMONARY HYPERTENSION
     Dosage: AS USED DOSE: UNK
     Dates: start: 20081029
  2. SILDENAFIL [Concomitant]
     Dates: start: 20100501

REACTIONS (3)
  - CALCINOSIS [None]
  - CARDIAC FAILURE [None]
  - SKIN ULCER [None]
